FAERS Safety Report 4763646-7 (Version None)
Quarter: 2005Q3

REPORT INFORMATION
  Report Type: 
  Country: None (occurrence: None)
  Receive Date: 20050901
  Receipt Date: 20050803
  Transmission Date: 20060218
  Serious: Yes (Other)
  Sender: FDA-Public Use
  Company Number: EGEL00205002490

PATIENT
  Age: 54 Year
  Sex: Female
  Weight: 66 kg

DRUGS (2)
  1. ESTROGEL [Suspect]
     Indication: HORMONE REPLACEMENT THERAPY
     Dosage: 1.25 GRAM(S) QD TRANSCUTANEOUS
     Route: 003
     Dates: start: 20050702, end: 20050705
  2. CYMBALTA (CYMBALTA) [Concomitant]

REACTIONS (1)
  - HYPERSENSITIVITY [None]
